FAERS Safety Report 9668812 (Version 2)
Quarter: 2013Q4

REPORT INFORMATION
  Report Type: Report from Study
  Country: US (occurrence: US)
  Receive Date: 20131105
  Receipt Date: 20131213
  Transmission Date: 20140711
  Serious: Yes (Other)
  Sender: FDA-Public Use
  Company Number: US-JNJFOC-20131016958

PATIENT
  Age: 49 Year
  Sex: Female
  Weight: 59.88 kg

DRUGS (6)
  1. REMICADE [Suspect]
     Indication: CROHN^S DISEASE
     Dosage: OVER 15 YEARS AGO
     Route: 042
  2. CETIRIZINE HYDROCHLORIDE [Concomitant]
     Indication: MULTIPLE ALLERGIES
     Route: 048
  3. MERCAPTOPURINE [Concomitant]
     Indication: CROHN^S DISEASE
     Route: 048
  4. LEVOTHYROXINE [Concomitant]
     Indication: THYROID DISORDER
     Dosage: 125 MCG
     Route: 048
  5. ATORVASTATIN [Concomitant]
     Indication: BLOOD CHOLESTEROL
     Route: 048
  6. FLONASE [Concomitant]
     Route: 045

REACTIONS (4)
  - Unevaluable event [Not Recovered/Not Resolved]
  - Laryngitis [Recovered/Resolved]
  - Drug tolerance [Not Recovered/Not Resolved]
  - Drug ineffective [Not Recovered/Not Resolved]
